FAERS Safety Report 20096900 (Version 7)
Quarter: 2023Q4

REPORT INFORMATION
  Report Type: Report from Study
  Country: AT (occurrence: AT)
  Receive Date: 20211122
  Receipt Date: 20231010
  Transmission Date: 20240110
  Serious: Yes (Hospitalization)
  Sender: FDA-Public Use
  Company Number: AT-AstraZeneca-2021A783048

PATIENT
  Age: 84 Year
  Sex: Male

DRUGS (22)
  1. APIXABAN [Suspect]
     Active Substance: APIXABAN
     Indication: Product used for unknown indication
  2. ESCITALOPRAM [Suspect]
     Active Substance: ESCITALOPRAM OXALATE
     Indication: Product used for unknown indication
  3. CLONAZEPAM [Suspect]
     Active Substance: CLONAZEPAM
     Indication: Product used for unknown indication
  4. PANTOPRAZOLE [Suspect]
     Active Substance: PANTOPRAZOLE
     Indication: Product used for unknown indication
  5. LACTULOSE [Suspect]
     Active Substance: LACTULOSE
     Indication: Product used for unknown indication
  6. LISINOPRIL [Suspect]
     Active Substance: LISINOPRIL
     Indication: Product used for unknown indication
     Route: 048
  7. METAMIZOLE [Suspect]
     Active Substance: METAMIZOLE
     Indication: Product used for unknown indication
  8. PYRIDOXINE [Suspect]
     Active Substance: PYRIDOXINE
     Indication: Product used for unknown indication
  9. CHOLECALCIFEROL [Suspect]
     Active Substance: CHOLECALCIFEROL
     Indication: Product used for unknown indication
  10. CHOLECALCIFEROL [Suspect]
     Active Substance: CHOLECALCIFEROL
  11. BENSERAZIDE HYDROCHLORIDE [Suspect]
     Active Substance: BENSERAZIDE HYDROCHLORIDE
     Indication: Product used for unknown indication
  12. BENSERAZIDE HYDROCHLORIDE [Suspect]
     Active Substance: BENSERAZIDE HYDROCHLORIDE
  13. CEFUROXIME [Suspect]
     Active Substance: CEFUROXIME
     Indication: Product used for unknown indication
  14. CEFUROXIME [Suspect]
     Active Substance: CEFUROXIME
  15. FOLIC ACID [Suspect]
     Active Substance: FOLIC ACID
     Indication: Product used for unknown indication
  16. FOLIC ACID [Suspect]
     Active Substance: FOLIC ACID
  17. BISOPROLOL [Suspect]
     Active Substance: BISOPROLOL\BISOPROLOL FUMARATE
     Indication: Product used for unknown indication
  18. BISOPROLOL [Suspect]
     Active Substance: BISOPROLOL\BISOPROLOL FUMARATE
  19. SIMVASTATIN [Suspect]
     Active Substance: SIMVASTATIN
     Indication: Product used for unknown indication
  20. SIMVASTATIN [Suspect]
     Active Substance: SIMVASTATIN
  21. QUETIAPINE [Suspect]
     Active Substance: QUETIAPINE
     Indication: Vascular dementia
     Dosage: 25MG (FREQUENCY 0-0-1/2)
     Route: 048
  22. AMLODIPINE [Suspect]
     Active Substance: AMLODIPINE BESYLATE
     Indication: Product used for unknown indication

REACTIONS (2)
  - Multiple drug therapy [Unknown]
  - Fall [Unknown]
